FAERS Safety Report 7437937-5 (Version None)
Quarter: 2011Q2

REPORT INFORMATION
  Report Type: 
  Country: None (occurrence: None)
  Receive Date: 20110426
  Receipt Date: 20110412
  Transmission Date: 20111010
  Serious: Yes (Death, Hospitalization)
  Sender: FDA-Public Use
  Company Number: US-CELGENEUS-163-20785-11040458

PATIENT
  Sex: Female
  Weight: 66.738 kg

DRUGS (15)
  1. ACETAMINOPHEN [Concomitant]
     Indication: DISCOMFORT
     Route: 065
  2. COLACE [Concomitant]
     Route: 065
  3. FOLTX [Concomitant]
     Route: 048
  4. CALCIUM [Concomitant]
     Dosage: 1500 MILLIGRAM
     Route: 048
  5. ENALAPRIL [Concomitant]
     Indication: HYPERTENSION
     Dosage: 5 MILLIGRAM
     Route: 048
  6. PAMIDRONATE DISODIUM [Concomitant]
     Dosage: 70 MILLIGRAM
     Route: 051
     Dates: start: 20080819, end: 20101112
  7. PAXIL [Concomitant]
     Indication: DEPRESSION
     Dosage: 10 MILLIGRAM
     Route: 048
  8. THALOMID [Suspect]
     Indication: MULTIPLE MYELOMA
     Dosage: 100 MILLIGRAM
     Route: 048
     Dates: start: 20090529, end: 20100705
  9. CLONAZEPAM [Concomitant]
     Dosage: .25 MILLIGRAM
     Route: 048
  10. MULTI-VITAMINS [Concomitant]
     Route: 048
  11. AZITHROMYCIN [Concomitant]
     Route: 065
  12. SORBITOL [Concomitant]
     Route: 065
  13. ASPIRIN [Concomitant]
     Dosage: 325 MILLIGRAM
     Route: 048
  14. SENNA [Concomitant]
     Route: 065
  15. MILK OF MAGNESIA TAB [Concomitant]
     Route: 065

REACTIONS (1)
  - NON-SMALL CELL LUNG CANCER STAGE IV [None]
